FAERS Safety Report 7432189-4 (Version None)
Quarter: 2011Q2

REPORT INFORMATION
  Report Type: 
  Country: None (occurrence: None)
  Receive Date: 20110422
  Receipt Date: 20110412
  Transmission Date: 20111010
  Serious: Yes (Other)
  Sender: FDA-Public Use
  Company Number: US-JNJFOC-20110405217

PATIENT
  Sex: Male
  Weight: 112.95 kg

DRUGS (3)
  1. SEROQUEL [Concomitant]
     Indication: BIPOLAR DISORDER
     Route: 048
  2. INVEGA SUSTENNA [Suspect]
     Indication: BIPOLAR DISORDER
     Route: 030
  3. LITHIUM [Concomitant]
     Indication: BIPOLAR DISORDER
     Dosage: 600 MG 3 AT BEDTIME
     Route: 048

REACTIONS (2)
  - WEIGHT INCREASED [None]
  - HEART RATE INCREASED [None]
